FAERS Safety Report 24652436 (Version 1)
Quarter: 2024Q4

REPORT INFORMATION
  Report Type: Report from Study
  Country: ES (occurrence: ES)
  Receive Date: 20241122
  Receipt Date: 20241122
  Transmission Date: 20250115
  Serious: Yes (Other)
  Sender: AMNEAL
  Company Number: ES-AMNEAL PHARMACEUTICALS-2024-AMRX-04232

PATIENT

DRUGS (9)
  1. ONGENTYS [Suspect]
     Active Substance: OPICAPONE
     Indication: Product used for unknown indication
     Dosage: UNK, QD
     Route: 048
     Dates: start: 2024, end: 20240510
  2. ONGENTYS [Suspect]
     Active Substance: OPICAPONE
     Dosage: UNK
     Route: 048
     Dates: start: 20240628
  3. FOSCARBIDOPA\FOSLEVODOPA [Suspect]
     Active Substance: FOSCARBIDOPA\FOSLEVODOPA
     Indication: Parkinson^s disease
     Dosage: 240 MG/ML + 12 MG/ML
     Route: 058
     Dates: start: 20240417, end: 20240422
  4. FOSCARBIDOPA\FOSLEVODOPA [Suspect]
     Active Substance: FOSCARBIDOPA\FOSLEVODOPA
     Dosage: BASE DOSE INCREASED, 240 MG/ML + 12 MG/ML (
     Route: 058
     Dates: start: 20240422, end: 20240427
  5. FOSCARBIDOPA\FOSLEVODOPA [Suspect]
     Active Substance: FOSCARBIDOPA\FOSLEVODOPA
     Dosage: LOW DOSE HAS BEEN INCREASED TO 0.30 INSTEAD OF 0.20, 240 MG/ML + 12 MG/ML
     Route: 058
     Dates: start: 20240427, end: 202405
  6. FOSCARBIDOPA\FOSLEVODOPA [Suspect]
     Active Substance: FOSCARBIDOPA\FOSLEVODOPA
     Dosage: BASE OF 0.49 ML/H AND A LOW OF 0.33 ML/H, 240 MG/ML + 12 MG/ML
     Route: 058
     Dates: start: 202405, end: 2024
  7. FOSCARBIDOPA\FOSLEVODOPA [Suspect]
     Active Substance: FOSCARBIDOPA\FOSLEVODOPA
     Dosage: PUMP AT 0.32 ML/H AT NIGHT AND 0.42 ML/H PER DAY
     Route: 058
     Dates: start: 2024
  8. SINEMET [Concomitant]
     Active Substance: CARBIDOPA\LEVODOPA
     Indication: On and off phenomenon
     Dosage: 100 GRAM
     Route: 048
     Dates: start: 2024
  9. INBRIJA [Concomitant]
     Active Substance: LEVODOPA
     Indication: On and off phenomenon
     Dosage: 3-4 TIMES
     Route: 065
     Dates: start: 2024

REACTIONS (22)
  - Dyspnoea [Not Recovered/Not Resolved]
  - Speech disorder [Not Recovered/Not Resolved]
  - On and off phenomenon [Not Recovered/Not Resolved]
  - Nervousness [Not Recovered/Not Resolved]
  - On and off phenomenon [Recovering/Resolving]
  - Puncture site haemorrhage [Unknown]
  - Malaise [Unknown]
  - Swelling [Unknown]
  - Gait inability [Recovered/Resolved]
  - Mass [Unknown]
  - Tremor [Not Recovered/Not Resolved]
  - Chorea [Unknown]
  - Unevaluable event [Unknown]
  - Erythema [Unknown]
  - Contusion [Unknown]
  - Therapeutic product effect incomplete [Unknown]
  - Skin mass [Unknown]
  - Therapeutic product effect incomplete [Unknown]
  - Aphasia [Not Recovered/Not Resolved]
  - Therapeutic product effect incomplete [Unknown]
  - Extra dose administered [Unknown]
  - Dyskinesia [Not Recovered/Not Resolved]

NARRATIVE: CASE EVENT DATE: 20240101
